FAERS Safety Report 6024832-1 (Version None)
Quarter: 2008Q4

REPORT INFORMATION
  Report Type: 
  Country: None (occurrence: None)
  Receive Date: 20081230
  Receipt Date: 20081230
  Transmission Date: 20090506
  Serious: Yes (Life-Threatening)
  Sender: FDA-Public Use
  Company Number: None

PATIENT
  Age: 20 Year
  Sex: Male
  Weight: 54.4316 kg

DRUGS (2)
  1. LYRICA [Suspect]
     Indication: NEURALGIA
     Dosage: 1 TWICE DAILY PO
     Route: 048
     Dates: start: 20081208, end: 20081211
  2. LYRICA [Suspect]
     Indication: NEURALGIA
     Dosage: 1 TWICE DAILY PO
     Route: 048
     Dates: start: 20081226, end: 20081229

REACTIONS (6)
  - ANGER [None]
  - IRRITABILITY [None]
  - MENTAL DISORDER [None]
  - PAIN [None]
  - SELF-INJURIOUS IDEATION [None]
  - VIOLENCE-RELATED SYMPTOM [None]
